FAERS Safety Report 15689904 (Version 1)
Quarter: 2018Q4

REPORT INFORMATION
  Report Type: Spontaneous
  Country: US (occurrence: US)
  Receive Date: 20181205
  Receipt Date: 20181205
  Transmission Date: 20190205
  Serious: Yes (Hospitalization)
  Sender: FDA-Public Use
  Company Number: None

PATIENT
  Age: 65 Year
  Sex: Male
  Weight: 67.5 kg

DRUGS (1)
  1. CEFTRIAXONE. [Suspect]
     Active Substance: CEFTRIAXONE
     Indication: CELLULITIS
     Route: 042
     Dates: start: 20181122, end: 20181125

REACTIONS (2)
  - Hepatic enzyme increased [None]
  - Hepatotoxicity [None]

NARRATIVE: CASE EVENT DATE: 20181125
